FAERS Safety Report 4327754-7 (Version None)
Quarter: 2004Q1

REPORT INFORMATION
  Report Type: 
  Country: None (occurrence: None)
  Receive Date: 20040325
  Receipt Date: 20040317
  Transmission Date: 20041129
  Serious: Yes (Hospitalization)
  Sender: FDA-Public Use
  Company Number: 2003035721

PATIENT
  Age: 86 Year
  Sex: Male

DRUGS (1)
  1. AMLODIPINE [Suspect]
     Indication: HYPERTENSION
     Dosage: 5 MG (DAILY),

REACTIONS (6)
  - ANAESTHETIC COMPLICATION [None]
  - FEELING HOT [None]
  - FORMICATION [None]
  - KNEE ARTHROPLASTY [None]
  - PARAESTHESIA [None]
  - POST PROCEDURAL COMPLICATION [None]
